FAERS Safety Report 8445946-2 (Version None)
Quarter: 2012Q2

REPORT INFORMATION
  Report Type: 
  Country: None (occurrence: None)
  Receive Date: 20120611
  Receipt Date: 20120522
  Transmission Date: 20120825
  Serious: Yes (Life-Threatening, Hospitalization)
  Sender: FDA-Public Use
  Company Number: 001248759A

PATIENT
  Age: 19 Year
  Sex: Female

DRUGS (2)
  1. PROACTIV 30 DAY KIT [Suspect]
     Indication: ACNE
     Dosage: TWICE DAILY DERMAL
     Dates: start: 20120507, end: 20120511
  2. FOLIC ACID [Concomitant]

REACTIONS (7)
  - URTICARIA [None]
  - DYSPNOEA [None]
  - DRUG HYPERSENSITIVITY [None]
  - BLOOD DISORDER [None]
  - PRURITUS [None]
  - RASH MACULAR [None]
  - SWELLING [None]
